FAERS Safety Report 11174885 (Version 2)
Quarter: 2015Q3

REPORT INFORMATION
  Report Type: Spontaneous
  Country: US (occurrence: US)
  Receive Date: 20150609
  Receipt Date: 20150707
  Transmission Date: 20151125
  Serious: Yes (Other)
  Sender: FDA-Public Use
  Company Number: US-CELGENEUS-USA-2015056201

PATIENT
  Age: 70 Year
  Sex: Female
  Weight: 98.06 kg

DRUGS (2)
  1. REVLIMID [Suspect]
     Active Substance: LENALIDOMIDE
     Route: 048
     Dates: start: 20120829
  2. REVLIMID [Suspect]
     Active Substance: LENALIDOMIDE
     Indication: PLASMA CELL MYELOMA
     Route: 048
     Dates: start: 201207

REACTIONS (3)
  - Neuropathy peripheral [Unknown]
  - Oedema peripheral [Unknown]
  - Cataract [Unknown]

NARRATIVE: CASE EVENT DATE: 20150518
